FAERS Safety Report 8017509-4 (Version None)
Quarter: 2011Q4

REPORT INFORMATION
  Report Type: 
  Country: None (occurrence: None)
  Receive Date: 20111228
  Receipt Date: 20111228
  Transmission Date: 20120403
  Serious: Yes (Other)
  Sender: FDA-Public Use
  Company Number: None

PATIENT
  Sex: Female
  Weight: 68.0396 kg

DRUGS (1)
  1. BONIVA [Suspect]
     Indication: OSTEOPOROSIS
     Dosage: 150 MG 1X MONTH ORAL
     Route: 048
     Dates: start: 19950101, end: 20110701

REACTIONS (3)
  - DIARRHOEA [None]
  - MUSCLE SPASMS [None]
  - PAIN IN JAW [None]
